FAERS Safety Report 8861364 (Version 1)
Quarter: 2012Q4

REPORT INFORMATION
  Report Type: 
  Country: US (occurrence: US)
  Receive Date: 20121025
  Receipt Date: 20121025
  Transmission Date: 20130627
  Serious: No
  Sender: FDA-Public Use
  Company Number: US-AMGEN-USASP2012012893

PATIENT
  Sex: Female

DRUGS (8)
  1. ENBREL [Suspect]
     Indication: PRODUCT USED FOR UNKNOWN INDICATION
     Dosage: 50 mg, qwk
  2. PREDNISONE [Concomitant]
     Dosage: 1 UNK, UNK
     Route: 048
  3. ATENOLOL [Concomitant]
     Dosage: 25 mg, UNK
     Route: 048
  4. CLONAZEPAM [Concomitant]
     Dosage: 1 mg, UNK
     Route: 048
  5. HYDROCHLOROTH [Concomitant]
     Dosage: 12.5 mg, UNK
     Route: 048
  6. ASA [Concomitant]
     Dosage: 81 mg, UNK
     Route: 048
  7. FELODIPINE [Concomitant]
     Dosage: 5 mg, UNK
     Route: 048
  8. BENICAR [Concomitant]
     Dosage: 5 mg, UNK
     Route: 048

REACTIONS (2)
  - Injection site rash [Unknown]
  - Injection site swelling [Unknown]
